FAERS Safety Report 9538840 (Version 6)
Quarter: 2014Q2

REPORT INFORMATION
  Report Type: Report from Study
  Country: DE (occurrence: DE)
  Receive Date: 20130920
  Receipt Date: 20140527
  Transmission Date: 20141212
  Serious: Yes (Hospitalization, Other)
  Sender: FDA-Public Use
  Company Number: DE-CELGENEUS-062-21880-12101837

PATIENT
  Age: 71 Year
  Sex: 0

DRUGS (12)
  1. REVLIMID [Suspect]
     Indication: HODGKIN^S DISEASE
     Route: 048
     Dates: start: 20120912, end: 20121002
  2. REVLIMID [Suspect]
     Route: 048
     Dates: start: 20121016, end: 20121029
  3. ADRIAMYCIN [Suspect]
     Indication: HODGKIN^S DISEASE
     Route: 065
     Dates: start: 20120912, end: 20120926
  4. ADRIAMYCIN [Suspect]
     Route: 065
     Dates: start: 20121016, end: 20121016
  5. DACARBAZINE [Suspect]
     Indication: HODGKIN^S DISEASE
     Route: 065
     Dates: start: 20120912, end: 20120926
  6. DACARBAZINE [Suspect]
     Route: 065
     Dates: start: 20121016, end: 20121016
  7. VINBLASTIN [Suspect]
     Indication: HODGKIN^S DISEASE
     Route: 065
     Dates: start: 20120912, end: 20120926
  8. VINBLASTIN [Suspect]
     Route: 065
     Dates: start: 20121016, end: 20121016
  9. ALLOPURINOL [Concomitant]
     Indication: PRODUCT USED FOR UNKNOWN INDICATION
     Dosage: 300 MILLIGRAM
     Route: 065
     Dates: start: 20121016, end: 20121029
  10. COTRIM FORTE [Concomitant]
     Indication: PRODUCT USED FOR UNKNOWN INDICATION
     Route: 065
     Dates: start: 20121016, end: 20121029
  11. FOLIC ACID [Concomitant]
     Indication: PRODUCT USED FOR UNKNOWN INDICATION
     Route: 065
     Dates: start: 20121016, end: 20121029
  12. ASS [Concomitant]
     Indication: PRODUCT USED FOR UNKNOWN INDICATION
     Dosage: 100 MILLIGRAM
     Route: 065
     Dates: start: 20121016, end: 20121030

REACTIONS (5)
  - Gastritis haemorrhagic [Recovered/Resolved]
  - Pulmonary embolism [Recovered/Resolved]
  - Pneumonia [Recovered/Resolved]
  - Duodenitis [Recovered/Resolved]
  - Pneumonia [Recovered/Resolved]
